FAERS Safety Report 5572217-4 (Version None)
Quarter: 2007Q4

REPORT INFORMATION
  Report Type: 
  Country: None (occurrence: None)
  Receive Date: 20071221
  Receipt Date: 20071210
  Transmission Date: 20080405
  Serious: Yes (Other)
  Sender: FDA-Public Use
  Company Number: IE-PFIZER INC-2007104315

PATIENT
  Age: 55 Year
  Sex: Female

DRUGS (1)
  1. LYRICA [Suspect]
     Indication: BACK PAIN
     Route: 048

REACTIONS (6)
  - APHASIA [None]
  - CONFUSIONAL STATE [None]
  - DIPLEGIA [None]
  - IMMOBILE [None]
  - PARKINSONISM [None]
  - TREMOR [None]
